FAERS Safety Report 23288493 (Version 2)
Quarter: 2023Q4

REPORT INFORMATION
  Report Type: Spontaneous
  Country: RU (occurrence: RU)
  Receive Date: 20231212
  Receipt Date: 20231219
  Transmission Date: 20240109
  Serious: Yes (Other)
  Sender: FDA-Public Use
  Company Number: RU-ORGANON-O2312RUS001022

PATIENT
  Age: 33 Year
  Sex: Female

DRUGS (1)
  1. ETONOGESTREL [Suspect]
     Active Substance: ETONOGESTREL
     Dosage: 1 IMPLANT
     Route: 058
     Dates: start: 202311

REACTIONS (2)
  - Device expulsion [Not Recovered/Not Resolved]
  - Implant site erythema [Unknown]

NARRATIVE: CASE EVENT DATE: 20230101
